FAERS Safety Report 5652420-5 (Version None)
Quarter: 2008Q1

REPORT INFORMATION
  Report Type: 
  Country: None (occurrence: None)
  Receive Date: 20080305
  Receipt Date: 20080305
  Transmission Date: 20080703
  Serious: Yes (Life-Threatening, Hospitalization, Other)
  Sender: FDA-Public Use
  Company Number: None

PATIENT
  Age: 74 Year
  Sex: Female
  Weight: 51.2565 kg

DRUGS (2)
  1. CYMBALTA [Suspect]
     Indication: DEATH OF RELATIVE
     Dosage: 60 MG 1 A DAY PO
     Route: 048
  2. CYMBALTA [Suspect]
     Indication: DEPRESSION
     Dosage: 60 MG 1 A DAY PO
     Route: 048

REACTIONS (5)
  - PAIN [None]
  - RENAL DISORDER [None]
  - RENAL IMPAIRMENT [None]
  - SWELLING [None]
  - URINARY TRACT OBSTRUCTION [None]
